FAERS Safety Report 9771259 (Version 1)
Quarter: 2013Q4

REPORT INFORMATION
  Report Type: Spontaneous
  Country: US (occurrence: US)
  Receive Date: 20131218
  Receipt Date: 20131218
  Transmission Date: 20140711
  Serious: Yes (Hospitalization, Other)
  Sender: FDA-Public Use
  Company Number: US-RB-061527-13

PATIENT
  Age: 0 None
  Sex: Female

DRUGS (4)
  1. SUBOXONE FILM [Suspect]
     Indication: DRUG DEPENDENCE
     Dosage: SUBOXONE FILM
     Route: 064
     Dates: start: 20130214, end: 20130424
  2. SUBUTEX [Suspect]
     Indication: DRUG DEPENDENCE
     Route: 064
     Dates: start: 20130424, end: 20131112
  3. WELLBUTRIN [Concomitant]
     Indication: DEPRESSION
     Dosage: DOSING REGIMEN UNKNOWN; MOTHER WAS TAKING 1 TABLET DAILY
     Route: 064
     Dates: start: 20130304, end: 201305
  4. WELLBUTRIN [Concomitant]
     Indication: ANXIETY
     Dosage: DOSING REGIMEN UNKNOWN; MOTHER WAS TAKING 1 TABLET DAILY
     Route: 064
     Dates: start: 20130304, end: 201305

REACTIONS (4)
  - Foetal exposure during pregnancy [Recovered/Resolved]
  - Drug withdrawal syndrome neonatal [Recovered/Resolved]
  - Macrosomia [Recovered/Resolved]
  - Shoulder dystocia [Recovered/Resolved]
